FAERS Safety Report 7247078-8 (Version None)
Quarter: 2011Q1

REPORT INFORMATION
  Report Type: 
  Country: None (occurrence: None)
  Receive Date: 20110127
  Receipt Date: 20110120
  Transmission Date: 20110831
  Serious: Yes (Other)
  Sender: FDA-Public Use
  Company Number: US-JNJFOC-20110106750

PATIENT
  Sex: Female
  Weight: 95.26 kg

DRUGS (14)
  1. NEXIUM [Concomitant]
     Route: 048
  2. CRESTOR [Concomitant]
     Indication: HYPERCHOLESTEROLAEMIA
     Route: 048
  3. DURAGESIC-50 [Suspect]
     Route: 062
  4. LYRICA [Concomitant]
     Indication: NEUROMUSCULAR BLOCKADE
     Route: 048
  5. DURAGESIC-50 [Suspect]
     Route: 062
  6. DURAGESIC-50 [Suspect]
     Route: 062
  7. PLAVIX [Concomitant]
     Indication: PERIPHERAL ARTERIAL OCCLUSIVE DISEASE
     Route: 048
  8. DURAGESIC-50 [Suspect]
     Indication: ILL-DEFINED DISORDER
     Route: 062
  9. LYRICA [Concomitant]
     Indication: PERIPHERAL ARTERIAL OCCLUSIVE DISEASE
     Route: 048
  10. LYRICA [Concomitant]
     Indication: FIBROMYALGIA
     Route: 048
  11. DURAGESIC-50 [Suspect]
     Route: 062
  12. ESTRADIOL [Concomitant]
     Indication: HORMONE LEVEL ABNORMAL
     Route: 048
  13. CITALOPRAM [Concomitant]
     Indication: ANTIDEPRESSANT THERAPY
     Route: 048
  14. ESTRADIOL [Concomitant]
     Indication: HYSTERECTOMY
     Route: 048

REACTIONS (13)
  - FEAR [None]
  - SOMNOLENCE [None]
  - DYSPNOEA [None]
  - MUSCULAR WEAKNESS [None]
  - BALANCE DISORDER [None]
  - FIBROMYALGIA [None]
  - VOMITING [None]
  - HYPOKINESIA [None]
  - LETHARGY [None]
  - ADVERSE DRUG REACTION [None]
  - HYPERHIDROSIS [None]
  - OVERDOSE [None]
  - HYPERSOMNIA [None]
